FAERS Safety Report 9919954 (Version 3)
Quarter: 2014Q1

REPORT INFORMATION
  Report Type: Spontaneous
  Country: JP (occurrence: JP)
  Receive Date: 20140224
  Receipt Date: 20140306
  Transmission Date: 20141002
  Serious: Yes (Hospitalization, Other)
  Sender: FDA-Public Use
  Company Number: PHHY2014JP018637

PATIENT
  Age: 39 Year
  Sex: Male

DRUGS (7)
  1. CLOZARIL [Suspect]
     Indication: SCHIZOPHRENIA
     Dosage: 200 MG
     Route: 048
  2. CLOZARIL [Suspect]
     Dosage: 175 MG
     Route: 048
  3. RISPERIDONE [Suspect]
     Indication: SCHIZOPHRENIA
  4. TIAPRIDE [Suspect]
     Indication: DYSTONIA
  5. QUETIAPINE [Suspect]
     Indication: DYSTONIA
  6. ARIPIPRAZOLE [Suspect]
     Indication: DYSTONIA
  7. PALIPERIDONE [Suspect]

REACTIONS (6)
  - Dystonia [Not Recovered/Not Resolved]
  - Delusion [Unknown]
  - Salivary hypersecretion [Unknown]
  - Dyskinesia [Unknown]
  - Muscle tightness [Unknown]
  - Drug ineffective [Unknown]
